APPROVED DRUG PRODUCT: METFORMIN HYDROCHLORIDE
Active Ingredient: METFORMIN HYDROCHLORIDE
Strength: 1GM
Dosage Form/Route: TABLET, EXTENDED RELEASE;ORAL
Application: A213247 | Product #002
Applicant: TWI PHARMACEUTICALS INC
Approved: Sep 29, 2021 | RLD: No | RS: No | Type: DISCN